FAERS Safety Report 9718388 (Version 1)
Quarter: 2013Q4

REPORT INFORMATION
  Report Type: Not Available
  Country: US (occurrence: US)
  Receive Date: 20131125
  Receipt Date: 20131125
  Transmission Date: 20140711
  Serious: No
  Sender: FDA-Public Use
  Company Number: US-VIVUS-2013V1000593

PATIENT
  Sex: Female
  Weight: 94.89 kg

DRUGS (2)
  1. QSYMIA 3.75MG/23MG [Suspect]
     Indication: OVERWEIGHT
     Route: 048
     Dates: start: 20130805
  2. ORTHO NOVUM 777 [Concomitant]
     Indication: CONTRACEPTION
     Dosage: STARTED 8 YEARS AGO
     Route: 048
     Dates: start: 2005

REACTIONS (5)
  - Lacrimation increased [Not Recovered/Not Resolved]
  - Eye irritation [Not Recovered/Not Resolved]
  - Dry eye [Not Recovered/Not Resolved]
  - Hypoaesthesia [Not Recovered/Not Resolved]
  - Paraesthesia [Not Recovered/Not Resolved]
